FAERS Safety Report 20450205 (Version 3)
Quarter: 2022Q2

REPORT INFORMATION
  Report Type: Spontaneous
  Country: FR (occurrence: FR)
  Receive Date: 20220209
  Receipt Date: 20220503
  Transmission Date: 20220721
  Serious: Yes (Disabling, Other)
  Sender: FDA-Public Use
  Company Number: FR-SA-SAC20220205000291

PATIENT
  Sex: Female
  Weight: 58 kg

DRUGS (1)
  1. MYOZYME [Suspect]
     Active Substance: ALGLUCOSIDASE ALFA
     Indication: Glycogen storage disease type II
     Dosage: 20 MG/KG, QOW
     Route: 042
     Dates: start: 2006

REACTIONS (8)
  - Paraparesis [Unknown]
  - Gait inability [Unknown]
  - Diaphragmatic injury [Unknown]
  - Infusion related hypersensitivity reaction [Recovered/Resolved]
  - Urticaria [Recovered/Resolved]
  - Asthenia [Recovering/Resolving]
  - Confusional state [Recovering/Resolving]
  - Dyspnoea [Recovering/Resolving]

NARRATIVE: CASE EVENT DATE: 20180101
